FAERS Safety Report 7715185-9 (Version None)
Quarter: 2011Q3

REPORT INFORMATION
  Report Type: 
  Country: None (occurrence: None)
  Receive Date: 20110829
  Receipt Date: 20110824
  Transmission Date: 20111222
  Serious: Yes (Other)
  Sender: FDA-Public Use
  Company Number: MX-BRISTOL-MYERS SQUIBB COMPANY-15999923

PATIENT
  Age: 47 Year
  Sex: Male

DRUGS (1)
  1. DASATINIB [Suspect]
     Dates: start: 20110301

REACTIONS (1)
  - COLITIS ULCERATIVE [None]
